FAERS Safety Report 8154502-5 (Version None)
Quarter: 2012Q1

REPORT INFORMATION
  Report Type: 
  Country: None (occurrence: None)
  Receive Date: 20120221
  Receipt Date: 20120213
  Transmission Date: 20120608
  Serious: Yes (Other)
  Sender: FDA-Public Use
  Company Number: US-ABBOTT-12P-163-0903866-00

PATIENT
  Sex: Female

DRUGS (5)
  1. LIPITOR [Concomitant]
     Indication: PRODUCT USED FOR UNKNOWN INDICATION
  2. METOPROLOL TARTRATE [Concomitant]
     Indication: HYPERTENSION
  3. BONIVA [Concomitant]
     Indication: PRODUCT USED FOR UNKNOWN INDICATION
     Dates: end: 20110101
  4. AMLODIPINE [Concomitant]
     Indication: HYPERTENSION
  5. HUMIRA [Suspect]
     Indication: RHEUMATOID ARTHRITIS
     Route: 058
     Dates: start: 20080901, end: 20120130

REACTIONS (3)
  - MALIGNANT MELANOMA [None]
  - SKIN MASS [None]
  - SKIN DISORDER [None]
